FAERS Safety Report 6396529-X (Version None)
Quarter: 2009Q4

REPORT INFORMATION
  Report Type: 
  Country: None (occurrence: None)
  Receive Date: 20091012
  Receipt Date: 20090930
  Transmission Date: 20100525
  Serious: Yes (Death, Life-Threatening, Hospitalization)
  Sender: FDA-Public Use
  Company Number: US-PFIZER INC-2007012778

PATIENT
  Sex: Male
  Weight: 42.2 kg

DRUGS (16)
  1. SOMATROPIN [Suspect]
     Indication: HYPOPITUITARISM
     Dosage: 1.7 MG, 1X/DAY
     Route: 058
     Dates: start: 20051104, end: 20060201
  2. LEVOTHYROXINE [Concomitant]
     Dosage: UNK
     Route: 048
     Dates: start: 20040214, end: 20070328
  3. TRILEPTAL [Concomitant]
     Dosage: UNK
     Route: 048
     Dates: end: 20070328
  4. MULTI-VITAMINS [Concomitant]
     Route: 048
     Dates: end: 20060201
  5. MEPRON [Concomitant]
     Dosage: UNK
     Route: 048
     Dates: end: 20070328
  6. ZOLOFT [Concomitant]
     Dosage: UNK
     Route: 048
     Dates: end: 20070328
  7. POTASSIUM CHLORIDE [Concomitant]
     Dosage: UNK
     Route: 048
     Dates: end: 20070328
  8. CELEBREX [Concomitant]
     Dosage: UNK
     Route: 048
     Dates: end: 20070328
  9. FENOFIBRATE [Concomitant]
     Dosage: UNK
     Route: 048
     Dates: end: 20070328
  10. DECADRON [Concomitant]
     Dosage: UNK
     Route: 048
     Dates: end: 20070328
  11. THALIDOMIDE [Concomitant]
     Dosage: UNK
     Route: 048
     Dates: end: 20070328
  12. MIRALAX [Concomitant]
     Dosage: UNK
     Route: 048
     Dates: end: 20070328
  13. ATIVAN [Concomitant]
     Dosage: UNK
     Route: 048
     Dates: end: 20070328
  14. ZOFRAN [Concomitant]
     Dosage: UNK
     Route: 017
     Dates: end: 20070328
  15. SCOPOLAMINE [Concomitant]
     Dosage: UNK
     Route: 062
     Dates: end: 20070328
  16. HEPARIN SODIUM [Concomitant]

REACTIONS (2)
  - BRAIN NEOPLASM MALIGNANT [None]
  - NEOPLASM RECURRENCE [None]
